FAERS Safety Report 13050015 (Version 1)
Quarter: 2016Q4

REPORT INFORMATION
  Report Type: Spontaneous
  Country: US (occurrence: US)
  Receive Date: 20161221
  Receipt Date: 20161221
  Transmission Date: 20170207
  Serious: Yes (Other)
  Sender: FDA-Public Use
  Company Number: PHHY2016US172577

PATIENT
  Age: 35 Week

DRUGS (1)
  1. SANDOSTATIN [Suspect]
     Active Substance: OCTREOTIDE ACETATE
     Indication: HYPERINSULINISM
     Dosage: 3.04 UG/KG, BID
     Route: 042

REACTIONS (2)
  - Thrombosis [Unknown]
  - Product use issue [Unknown]
